FAERS Safety Report 25775125 (Version 1)
Quarter: 2025Q3

REPORT INFORMATION
  Report Type: Report from Study
  Country: CA (occurrence: CA)
  Receive Date: 20250909
  Receipt Date: 20250909
  Transmission Date: 20251020
  Serious: Yes (Other)
  Sender: ABBVIE
  Company Number: CA-ABBVIE-6444096

PATIENT
  Sex: Male

DRUGS (1)
  1. SKYRIZI [Suspect]
     Active Substance: RISANKIZUMAB-RZAA
     Indication: Crohn^s disease
     Dosage: LAST DOSE DATE: 20 AUG 2025
     Route: 058

REACTIONS (4)
  - Fistula [Unknown]
  - Furuncle [Unknown]
  - Aphthous ulcer [Recovered/Resolved]
  - Haematochezia [Unknown]
